FAERS Safety Report 8518951-5 (Version None)
Quarter: 2012Q3

REPORT INFORMATION
  Report Type: 
  Country: None (occurrence: None)
  Receive Date: 20120718
  Receipt Date: 20120713
  Transmission Date: 20120928
  Serious: Yes (Hospitalization)
  Sender: FDA-Public Use
  Company Number: JP-GLAXOSMITHKLINE-B0805336A

PATIENT
  Sex: Female

DRUGS (10)
  1. REQUIP [Suspect]
     Dosage: 1MG PER DAY
     Route: 048
     Dates: start: 20120623
  2. REQUIP [Suspect]
     Dosage: 2MG PER DAY
     Route: 048
     Dates: start: 20120525
  3. CARBIDOPA AND LEVODOPA [Concomitant]
     Dosage: 400MG PER DAY
     Route: 048
  4. UNKNOWN DRUG [Concomitant]
     Route: 065
  5. UNKNOWN DRUG [Concomitant]
     Route: 065
  6. REQUIP [Suspect]
     Indication: PARKINSON'S DISEASE
     Dosage: 3MG PER DAY
     Route: 048
     Dates: end: 20120524
  7. PRAMIPEXOLE DIHYDROCHLORIDE [Concomitant]
     Dosage: .5MG PER DAY
     Route: 048
  8. SELEGILINE HCL [Concomitant]
     Dosage: 2.5MG PER DAY
     Route: 048
  9. DOPS (JAPAN) [Concomitant]
     Dosage: 300MG PER DAY
     Route: 048
  10. UNKNOWN DRUG [Concomitant]
     Route: 065

REACTIONS (5)
  - FEMUR FRACTURE [None]
  - FALL [None]
  - PARKINSONIAN GAIT [None]
  - FREEZING PHENOMENON [None]
  - SUDDEN ONSET OF SLEEP [None]
